FAERS Safety Report 9767671 (Version 1)
Quarter: 2013Q3

REPORT INFORMATION
  Report Type: Spontaneous
  Country: JP (occurrence: None)
  Receive Date: 20130828
  Receipt Date: 20130828
  Transmission Date: 20140515
  Serious: Yes (Death)
  Sender: FDA-Public Use
  Company Number: SYM-2013-09578

PATIENT
  Sex: 0

DRUGS (3)
  1. FLUOROURACIL (FLUOROURACIL) (FLUOROURACIL) [Suspect]
     Indication: OESOPHAGEAL SQUAMOUS CELL CARCINOMA
  2. THERAPEUTIC RADIOPHARMACEUTICALS (THERAPEUTIC RADIOPHARMACEUTICALS) [Suspect]
     Indication: OESOPHAGEAL SQUAMOUS CELL CARCINOMA
     Dosage: 2 GY FRACTION, DAILY
  3. CISPLATIN (CISPLATIN) (CISPLATIN) [Suspect]
     Indication: OESOPHAGEAL SQUAMOUS CELL CARCINOMA
     Dosage: 70 MG/M2

REACTIONS (1)
  - Fistula [None]
